FAERS Safety Report 7362146-8 (Version None)
Quarter: 2011Q1

REPORT INFORMATION
  Report Type: 
  Country: None (occurrence: None)
  Receive Date: 20110318
  Receipt Date: 20110311
  Transmission Date: 20110831
  Serious: Yes (Hospitalization)
  Sender: FDA-Public Use
  Company Number: GB-EISAI INC-E2020-08780-SOL-GB

PATIENT
  Sex: Female

DRUGS (3)
  1. ARICEPT [Suspect]
     Route: 048
     Dates: start: 20100101, end: 20100601
  2. ARICEPT [Suspect]
     Dosage: TOOK 8 DAYS WORTH OF TABLETS INCLUDING ARICEPT
     Route: 048
     Dates: start: 20100601, end: 20100601
  3. ARICEPT [Suspect]
     Route: 048
     Dates: start: 20100101

REACTIONS (2)
  - CARDIAC ARREST [None]
  - OVERDOSE [None]
